FAERS Safety Report 14580721 (Version 1)
Quarter: 2018Q1

REPORT INFORMATION
  Report Type: Spontaneous
  Country: CA (occurrence: CA)
  Receive Date: 20180228
  Receipt Date: 20180228
  Transmission Date: 20180509
  Serious: Yes (Disabling)
  Sender: FDA-Public Use
  Company Number: CA-TEVA-2018-CA-863282

PATIENT
  Age: 19 Year
  Sex: Male
  Weight: 65.83 kg

DRUGS (1)
  1. ATOMOXETINE. [Suspect]
     Active Substance: ATOMOXETINE HYDROCHLORIDE
     Indication: ATTENTION DEFICIT/HYPERACTIVITY DISORDER
     Route: 048

REACTIONS (16)
  - Abdominal pain upper [Unknown]
  - Dysuria [Unknown]
  - Disturbance in sexual arousal [Unknown]
  - Testicular pain [Unknown]
  - Urine odour abnormal [Unknown]
  - Drug ineffective [Unknown]
  - Ejaculation failure [Unknown]
  - Fatigue [Unknown]
  - Loss of libido [Unknown]
  - Abdominal pain [Unknown]
  - Chromaturia [Unknown]
  - Somnolence [Unknown]
  - Erectile dysfunction [Unknown]
  - Libido decreased [Unknown]
  - Painful ejaculation [Unknown]
  - Spermatozoa abnormal [Unknown]
